FAERS Safety Report 11279041 (Version 1)
Quarter: 2015Q3

REPORT INFORMATION
  Report Type: Spontaneous
  Country: CH (occurrence: None)
  Receive Date: 20150715
  Receipt Date: 20150715
  Transmission Date: 20151125
  Serious: Yes (Other)
  Sender: FDA-Public Use
  Company Number: CO-ZF-CH-2015-006

PATIENT
  Age: 32 Year
  Sex: Female

DRUGS (6)
  1. ZINACEF [Suspect]
     Active Substance: CEFUROXIME SODIUM
     Indication: BACTERIAL INFECTION
     Route: 041
     Dates: start: 20150227, end: 20150303
  2. MABTHERA [Suspect]
     Active Substance: RITUXIMAB
     Indication: MULTIPLE SCLEROSIS
     Route: 041
     Dates: start: 20140730, end: 20150217
  3. ZOFRAN (UNKNOWN) (ONDANSETRON) [Concomitant]
  4. CIPRALEX (UNKNOWN) (ESCITALOPRAM) [Concomitant]
  5. PERFALGAN [Concomitant]
     Active Substance: ACETAMINOPHEN
  6. NEUPOGEN (UNKNOWN) (FILGRASTIM) [Concomitant]

REACTIONS (3)
  - Agranulocytosis [None]
  - Neutropenia [None]
  - Lymphopenia [None]

NARRATIVE: CASE EVENT DATE: 20150304
